FAERS Safety Report 8899671 (Version 1)
Quarter: 2012Q4

REPORT INFORMATION
  Report Type: 
  Country: US (occurrence: US)
  Receive Date: 20121108
  Receipt Date: 20121108
  Transmission Date: 20130627
  Serious: No
  Sender: FDA-Public Use
  Company Number: US-AMGEN-USASP2012031920

PATIENT
  Age: 59 Year
  Sex: Female
  Weight: 75 kg

DRUGS (8)
  1. ENBREL [Suspect]
     Indication: PRODUCT USED FOR UNKNOWN INDICATION
     Dosage: 50 mg, qwk
     Route: 058
  2. NABUMETONE [Concomitant]
     Dosage: 750 mg, UNK
  3. LEVOTHYROXIN [Concomitant]
     Dosage: 100 mug, UNK
  4. METOPROLOL [Concomitant]
     Dosage: 25 mg, UNK
  5. RIFAMPIN [Concomitant]
     Dosage: 300 mg, UNK
  6. METHOTREXATE [Concomitant]
  7. HYDROCODONE/APAP [Concomitant]
  8. FOLIC ACID [Concomitant]
     Dosage: 20 mg, UNK

REACTIONS (3)
  - Ear disorder [Unknown]
  - Oropharyngeal pain [Unknown]
  - Arthralgia [Unknown]
